FAERS Safety Report 20377876 (Version 1)
Quarter: 2022Q1

REPORT INFORMATION
  Report Type: Report from Study
  Country: BR (occurrence: BR)
  Receive Date: 20220126
  Receipt Date: 20220126
  Transmission Date: 20220423
  Serious: Yes (Other)
  Sender: FDA-Public Use
  Company Number: BR-TAKEDA-2022TUS004498

PATIENT
  Sex: Male

DRUGS (2)
  1. ANTI-INHIBITOR COAGULANT COMPLEX [Suspect]
     Active Substance: ANTI-INHIBITOR COAGULANT COMPLEX
     Indication: Haemophilia
     Route: 042
  2. EMICIZUMAB [Concomitant]
     Active Substance: EMICIZUMAB
     Dosage: PATIENT?S NOW IN THE 3RD WEEK

REACTIONS (2)
  - Myocardial infarction [Recovering/Resolving]
  - Drug ineffective [Unknown]
